FAERS Safety Report 19819177 (Version 1)
Quarter: 2021Q3

REPORT INFORMATION
  Report Type: Spontaneous
  Country: DE (occurrence: DE)
  Receive Date: 20210913
  Receipt Date: 20210913
  Transmission Date: 20211014
  Serious: Yes (Hospitalization, Other)
  Sender: FDA-Public Use
  Company Number: DE-AUROBINDO-AUR-APL-2021-038208

PATIENT
  Age: 81 Year
  Sex: Male
  Weight: 87 kg

DRUGS (7)
  1. BISOPROLOL [Suspect]
     Active Substance: BISOPROLOL
     Indication: PRODUCT USED FOR UNKNOWN INDICATION
     Dosage: 2.5 MILLIGRAM, ONCE A DAY (2.5 MG, 1?0?0?0)
     Route: 065
  2. PANTOPRAZOL [Concomitant]
     Active Substance: PANTOPRAZOLE SODIUM
     Indication: PRODUCT USED FOR UNKNOWN INDICATION
     Dosage: 20 MILLIGRAM, ONCE A DAY (20 MG, 1?0?0?0)
     Route: 065
  3. ALLOPURINOL. [Concomitant]
     Active Substance: ALLOPURINOL
     Indication: PRODUCT USED FOR UNKNOWN INDICATION
     Dosage: 300 MILLIGRAM (300 MG, 0.5?0?0?0)
     Route: 065
  4. TORASEMID [Concomitant]
     Active Substance: TORSEMIDE
     Indication: PRODUCT USED FOR UNKNOWN INDICATION
     Dosage: 5 MILLIGRAM, ONCE A DAY (5 MG, 1?0?0?0)
     Route: 065
  5. HYDROCHLOROTHIAZIDE;RAMIPRIL [Concomitant]
     Active Substance: HYDROCHLOROTHIAZIDE\RAMIPRIL
     Indication: PRODUCT USED FOR UNKNOWN INDICATION
     Dosage: 25|5 MG, 1?0?0?0
     Route: 065
  6. FENOFIBRAT [Concomitant]
     Active Substance: FENOFIBRATE
     Indication: PRODUCT USED FOR UNKNOWN INDICATION
     Dosage: 200 MILLIGRAM, ONCE A DAY (200 MG, 0?0?1?0)
     Route: 065
  7. ACETYLSALICYLIC ACID [Concomitant]
     Active Substance: ASPIRIN
     Indication: PRODUCT USED FOR UNKNOWN INDICATION
     Dosage: 100 MILLIGRAM, ONCE A DAY (100 MG, 0?1?0?0)
     Route: 065

REACTIONS (10)
  - Weight increased [Unknown]
  - Dizziness [Unknown]
  - Electrocardiogram abnormal [Unknown]
  - Renal impairment [Unknown]
  - Dyspnoea [Unknown]
  - Systemic infection [Unknown]
  - Oedema peripheral [Unknown]
  - Testicular oedema [Unknown]
  - General physical health deterioration [Unknown]
  - Testicular swelling [Unknown]
